FAERS Safety Report 21435863 (Version 1)
Quarter: 2022Q4

REPORT INFORMATION
  Report Type: Report from Study
  Country: CN (occurrence: CN)
  Receive Date: 20221010
  Receipt Date: 20221010
  Transmission Date: 20230113
  Serious: Yes (Hospitalization, Other)
  Sender: FDA-Public Use
  Company Number: CN-ViiV Healthcare Limited-CN2022GSK141118

PATIENT

DRUGS (6)
  1. LAMIVUDINE [Suspect]
     Active Substance: LAMIVUDINE
     Indication: HIV infection
     Dosage: UNK
     Dates: start: 2015
  2. LAMIVUDINE [Suspect]
     Active Substance: LAMIVUDINE
     Dosage: UNK
     Dates: start: 2020
  3. DOLUTEGRAVIR [Suspect]
     Active Substance: DOLUTEGRAVIR
     Indication: HIV infection
     Dosage: UNK
     Dates: start: 2020
  4. TENOFOVIR DISOPROXIL FUMARATE [Suspect]
     Active Substance: TENOFOVIR DISOPROXIL FUMARATE
     Indication: HIV infection
     Dosage: UNK
     Dates: start: 2015
  5. TENOFOVIR DISOPROXIL FUMARATE [Suspect]
     Active Substance: TENOFOVIR DISOPROXIL FUMARATE
     Dosage: UNK
     Dates: start: 2020
  6. EFAVIRENZ [Suspect]
     Active Substance: EFAVIRENZ
     Indication: HIV infection
     Dosage: UNK
     Dates: start: 2015

REACTIONS (19)
  - Haemoglobin decreased [Unknown]
  - Platelet count decreased [Unknown]
  - Abdominal pain [Unknown]
  - Haematemesis [Unknown]
  - Non-cirrhotic portal hypertension [Unknown]
  - Splenomegaly [Unknown]
  - Hepatic cirrhosis [Unknown]
  - Varices oesophageal [Unknown]
  - Gastric varices [Unknown]
  - Portal hypertensive gastropathy [Unknown]
  - Gastritis erosive [Unknown]
  - Duodenal ulcer [Unknown]
  - Collateral circulation [Unknown]
  - Biliary dilatation [Unknown]
  - Pancreatic duct dilatation [Unknown]
  - Adrenal adenoma [Unknown]
  - Aspartate aminotransferase increased [Unknown]
  - Pelvic fluid collection [Unknown]
  - Intra-abdominal fluid collection [Unknown]

NARRATIVE: CASE EVENT DATE: 20200101
